FAERS Safety Report 9302747 (Version 1)
Quarter: 2013Q2

REPORT INFORMATION
  Report Type: Report from Study
  Country: US (occurrence: US)
  Receive Date: 20130522
  Receipt Date: 20130522
  Transmission Date: 20140414
  Serious: Yes (Other)
  Sender: FDA-Public Use
  Company Number: PHEH2013US010988

PATIENT
  Sex: Female

DRUGS (2)
  1. SANDOSTATIN LAR DEPOT [Suspect]
     Dosage: 20 MG, UNK
  2. SANDOSTATIN LAR DEPOT [Suspect]
     Dosage: 30 MG, UNK

REACTIONS (1)
  - Neoplasm [Unknown]
